FAERS Safety Report 8144735-6 (Version None)
Quarter: 2012Q1

REPORT INFORMATION
  Report Type: 
  Country: None (occurrence: None)
  Receive Date: 20120214
  Receipt Date: 20120130
  Transmission Date: 20120608
  Serious: Yes (Hospitalization)
  Sender: FDA-Public Use
  Company Number: AMAG201200025

PATIENT
  Age: 62 Year
  Sex: Male

DRUGS (1)
  1. FERAHEME [Suspect]
     Dates: start: 20100125, end: 20100125

REACTIONS (3)
  - CHEST PAIN [None]
  - ASTHENIA [None]
  - DYSPNOEA [None]
